FAERS Safety Report 17545751 (Version 3)
Quarter: 2021Q3

REPORT INFORMATION
  Report Type: Spontaneous
  Country: JP (occurrence: JP)
  Receive Date: 20200316
  Receipt Date: 20210816
  Transmission Date: 20211014
  Serious: Yes (Other)
  Sender: FDA-Public Use
  Company Number: JP-PFIZER INC-2020106714

PATIENT
  Age: 12 Year
  Sex: Male

DRUGS (11)
  1. HYDROCORTISONE. [Suspect]
     Active Substance: HYDROCORTISONE
  2. ACETAMINOPHEN. [Suspect]
     Active Substance: ACETAMINOPHEN
     Dosage: UNK
  3. PENTAZOCINE [Suspect]
     Active Substance: PENTAZOCINE
  4. 5?ASA [Suspect]
     Active Substance: MESALAMINE
     Dosage: UNK
  5. CEFOTAXIME [Suspect]
     Active Substance: CEFOTAXIME SODIUM
     Dosage: UNK
  6. HYDROXYZINE PAMOATE. [Suspect]
     Active Substance: HYDROXYZINE PAMOATE
     Dosage: UNK
  7. LIDOCAINE. [Suspect]
     Active Substance: LIDOCAINE
  8. ESCHERICHIA COLI [Suspect]
     Active Substance: ESCHERICHIA COLI
  9. METRONIDAZOLE. [Suspect]
     Active Substance: METRONIDAZOLE
  10. ALCOHOL. [Suspect]
     Active Substance: ALCOHOL
  11. VASELINE [PARAFFIN SOFT] [Suspect]
     Active Substance: PARAFFIN

REACTIONS (2)
  - Disseminated intravascular coagulation [Recovered/Resolved]
  - Drug hypersensitivity [Recovered/Resolved]
